FAERS Safety Report 8184953-4 (Version None)
Quarter: 2012Q1

REPORT INFORMATION
  Report Type: 
  Country: None (occurrence: None)
  Receive Date: 20120305
  Receipt Date: 20120224
  Transmission Date: 20120608
  Serious: Yes (Hospitalization)
  Sender: FDA-Public Use
  Company Number: DK-GLAXOSMITHKLINE-B0782364A

PATIENT
  Age: 16 Year
  Sex: Male

DRUGS (1)
  1. FLUTICASONE PROPIONATE/SALMETEROL [Suspect]
     Indication: ASTHMA
     Dosage: 1000MGD PER DAY
     Route: 055

REACTIONS (4)
  - BLOOD CORTICOTROPHIN DECREASED [None]
  - SEPSIS [None]
  - ADRENAL INSUFFICIENCY [None]
  - PITUITARY TUMOUR BENIGN [None]
